FAERS Safety Report 5004357-2 (Version None)
Quarter: 2006Q2

REPORT INFORMATION
  Report Type: 
  Country: None (occurrence: None)
  Receive Date: 20060517
  Receipt Date: 20060508
  Transmission Date: 20061013
  Serious: Yes (Other)
  Sender: FDA-Public Use
  Company Number: GB-GLAXOSMITHKLINE-B0423024A

PATIENT
  Age: 75 Year
  Sex: Female

DRUGS (4)
  1. ONDANSETRON HCL [Suspect]
     Indication: NAUSEA
     Dosage: 4MG PER DAY
     Route: 042
     Dates: start: 20060402, end: 20060402
  2. TINZAPARIN [Concomitant]
     Indication: PROPHYLAXIS
     Dosage: 3500IU PER DAY
     Route: 058
     Dates: start: 20060328
  3. PARACETAMOL [Concomitant]
     Indication: PAIN
     Dosage: 1G FOUR TIMES PER DAY
     Route: 048
     Dates: start: 20060328
  4. MORPHINE [Concomitant]
     Indication: PAIN
     Dosage: 10MG PER DAY
     Route: 042
     Dates: start: 20060402, end: 20060402

REACTIONS (4)
  - AGITATION [None]
  - DYSKINESIA [None]
  - EMOTIONAL DISTRESS [None]
  - TONGUE DISORDER [None]
